FAERS Safety Report 7199788-9 (Version None)
Quarter: 2010Q4

REPORT INFORMATION
  Report Type: 
  Country: None (occurrence: None)
  Receive Date: 20101214
  Receipt Date: 20101129
  Transmission Date: 20110411
  Serious: Yes (Hospitalization)
  Sender: FDA-Public Use
  Company Number: NL-004215

PATIENT
  Sex: Female
  Weight: 80 kg

DRUGS (2)
  1. MENOPUR [Suspect]
     Indication: IN VITRO FERTILISATION
     Dosage: 75 IE + 1 ML SUBCUTANEOUS
     Route: 058
     Dates: start: 20100816
  2. DECAPEPTYL (DECAPEPTYL) 0.5 MG (NOT SPECIFIED) [Suspect]
     Indication: IN VITRO FERTILISATION
     Dosage: SUBCUTANEOUS
     Route: 058
     Dates: start: 20100916

REACTIONS (1)
  - THROMBOCYTOPENIA [None]
